FAERS Safety Report 10564909 (Version 4)
Quarter: 2015Q1

REPORT INFORMATION
  Report Type: Spontaneous
  Country: GB (occurrence: GB)
  Receive Date: 20141105
  Receipt Date: 20150309
  Transmission Date: 20150720
  Serious: Yes (Hospitalization)
  Sender: FDA-Public Use
  Company Number: GB-ACCORD-026830

PATIENT
  Sex: Male

DRUGS (3)
  1. ACCORD MYCOPHENOLATE MOFETIL [Suspect]
     Active Substance: MYCOPHENOLATE MOFETIL
     Indication: PRODUCT USED FOR UNKNOWN INDICATION
     Dosage: STRENGTH: 500 MG TABLETS (50)
     Route: 048
  2. PREDNISOLONE. [Suspect]
     Active Substance: PREDNISOLONE
     Indication: PRODUCT USED FOR UNKNOWN INDICATION
     Dosage: PREDNISOLONE 5 MG TABLETS (28)
     Route: 048
  3. ARANESP [Suspect]
     Active Substance: DARBEPOETIN ALFA
     Indication: NEPHROGENIC ANAEMIA
     Dosage: ARANESP 20 MCG/ 0.5 ML
     Dates: start: 2002

REACTIONS (6)
  - Cerebrovascular accident [Unknown]
  - Vertigo [Unknown]
  - Vomiting [Unknown]
  - Cerebellar infarction [Unknown]
  - Balance disorder [Unknown]
  - Coordination abnormal [Unknown]
